FAERS Safety Report 23035199 (Version 1)
Quarter: 2023Q4

REPORT INFORMATION
  Report Type: Spontaneous
  Country: US (occurrence: US)
  Receive Date: 20231005
  Receipt Date: 20231005
  Transmission Date: 20240110
  Serious: Yes (Other)
  Sender: FDA-Public Use
  Company Number: US-HORIZON THERAPEUTICS-HZN-2023-007503

PATIENT

DRUGS (1)
  1. TEPEZZA [Suspect]
     Active Substance: TEPROTUMUMAB-TRBW
     Indication: Product used for unknown indication
     Dosage: FIRST DOSE
     Route: 065

REACTIONS (7)
  - Hyperthyroidism [Unknown]
  - Condition aggravated [Unknown]
  - Fatigue [Unknown]
  - Tinnitus [Unknown]
  - Amenorrhoea [Unknown]
  - Muscle spasms [Unknown]
  - Alopecia [Unknown]
